FAERS Safety Report 4853423-0 (Version None)
Quarter: 2005Q4

REPORT INFORMATION
  Report Type: 
  Country: None (occurrence: None)
  Receive Date: 20051214
  Receipt Date: 20050805
  Transmission Date: 20060501
  Serious: Yes (Other)
  Sender: FDA-Public Use
  Company Number: PHBS2005JP11405

PATIENT
  Age: 50 Year
  Sex: Male
  Weight: 70 kg

DRUGS (3)
  1. GLEEVEC [Suspect]
     Indication: CHRONIC MYELOID LEUKAEMIA
     Dosage: 400 MG/D
     Route: 048
     Dates: start: 20040721, end: 20050803
  2. GLEEVEC [Suspect]
     Dosage: 400 MG/D
     Route: 048
     Dates: start: 20050831
  3. LASIX [Concomitant]
     Indication: OEDEMA
     Dosage: 20 MG/D
     Route: 048
     Dates: start: 20040908

REACTIONS (4)
  - HYPOAESTHESIA [None]
  - NERVOUS SYSTEM DISORDER [None]
  - OEDEMA [None]
  - RADIAL NERVE PALSY [None]
